FAERS Safety Report 6373634-5 (Version None)
Quarter: 2009Q3

REPORT INFORMATION
  Report Type: 
  Country: None (occurrence: None)
  Receive Date: 20090924
  Receipt Date: 20090911
  Transmission Date: 20100115
  Serious: Yes (Hospitalization)
  Sender: FDA-Public Use
  Company Number: FR-PFIZER INC-2009267884

PATIENT
  Age: 64 Year

DRUGS (5)
  1. CHAMPIX [Suspect]
     Dosage: UNK
     Route: 048
     Dates: start: 20090601, end: 20090815
  2. TELFAST [Suspect]
     Dosage: 1 DF, 2X/DAY
     Route: 048
     Dates: start: 20090715, end: 20090825
  3. EFFERALGAN [Suspect]
     Indication: ABDOMINAL PAIN
     Dosage: 16 G, UNK
     Route: 048
     Dates: start: 20090821, end: 20090823
  4. BUFLOMEDIL [Suspect]
     Dosage: 1 DF, 2X/DAY
     Route: 048
     Dates: start: 20090715, end: 20090825
  5. PLAVIX [Concomitant]
     Dosage: 1 DF, 1X/DAY
     Route: 048
     Dates: start: 20090715

REACTIONS (1)
  - CYTOLYTIC HEPATITIS [None]
